FAERS Safety Report 5578485-7 (Version None)
Quarter: 2007Q4

REPORT INFORMATION
  Report Type: 
  Country: None (occurrence: None)
  Receive Date: 20071231
  Receipt Date: 20071220
  Transmission Date: 20080405
  Serious: Yes (Hospitalization)
  Sender: FDA-Public Use
  Company Number: CH-MERCK-0710CHE00022

PATIENT
  Age: 55 Year
  Sex: Male
  Weight: 100 kg

DRUGS (5)
  1. JANUVIA [Suspect]
     Indication: TYPE 2 DIABETES MELLITUS
     Route: 048
     Dates: start: 20070803
  2. METFORMIN HYDROCHLORIDE [Concomitant]
     Indication: TYPE 2 DIABETES MELLITUS
     Route: 048
     Dates: start: 20050101
  3. BISOPROLOL FUMARATE [Concomitant]
     Indication: HYPERTONIA
     Route: 048
     Dates: start: 20050101
  4. PRAVASTATIN SODIUM [Concomitant]
     Indication: DYSLIPIDAEMIA
     Route: 048
     Dates: start: 20060101
  5. RAMIPRIL [Concomitant]
     Indication: HYPERTONIA
     Route: 048
     Dates: start: 20070101

REACTIONS (2)
  - CHEST PAIN [None]
  - HYPERTONIA [None]
